FAERS Safety Report 18714981 (Version 1)
Quarter: 2021Q1

REPORT INFORMATION
  Report Type: Spontaneous
  Country: MX (occurrence: MX)
  Receive Date: 20210108
  Receipt Date: 20210108
  Transmission Date: 20210419
  Serious: Yes (Death)
  Sender: FDA-Public Use
  Company Number: MX-JNJFOC-20210109460

PATIENT
  Age: 79 Year
  Sex: Male
  Weight: 100 kg

DRUGS (1)
  1. RIVAROXABAN [Suspect]
     Active Substance: RIVAROXABAN
     Indication: PRODUCT USED FOR UNKNOWN INDICATION
     Dosage: 2 TABLETS OF XARELTO 2.5MG EVERY 24 HOURS AS PRESCRIBED
     Route: 048

REACTIONS (2)
  - Off label use [Unknown]
  - Renal failure [Fatal]

NARRATIVE: CASE EVENT DATE: 20191101
